FAERS Safety Report 6643779-0 (Version None)
Quarter: 2010Q1

REPORT INFORMATION
  Report Type: 
  Country: None (occurrence: None)
  Receive Date: 20100322
  Receipt Date: 20100312
  Transmission Date: 20100710
  Serious: Yes (Hospitalization)
  Sender: FDA-Public Use
  Company Number: US-ELI_LILLY_AND_COMPANY-US201001006240

PATIENT
  Sex: Female
  Weight: 65.76 kg

DRUGS (17)
  1. F1J-US-HMFR PH IIIB CYM VS. PLCB IN PATI [Suspect]
     Indication: NEURALGIA
  2. ENALAPRIL MALEATE [Suspect]
     Indication: HYPERTENSION
     Dosage: 20 MG, DAILY (1/D)
     Dates: start: 20020101
  3. HYDROCHLOROTHIAZIDE [Concomitant]
     Indication: HYPERTENSION
     Dosage: 10 MG, DAILY (1/D)
     Dates: start: 20020101
  4. BACLOFEN [Concomitant]
     Indication: MUSCLE SPASMS
     Dosage: 80 MG, DAILY (1/D)
     Dates: start: 19910101
  5. ZOLPIDEM [Concomitant]
     Indication: INSOMNIA
     Dosage: 20 MG, DAILY (1/D)
     Dates: start: 20090101
  6. LORAZEPAM [Concomitant]
     Indication: ANXIETY
     Dosage: 10 MG, DAILY (1/D)
     Dates: start: 20020101
  7. DARIFENACIN [Concomitant]
     Indication: URINARY INCONTINENCE
     Dosage: 7.5 MG, DAILY (1/D)
     Dates: start: 20100101
  8. OXYBUTYNIN CHLORIDE [Concomitant]
     Indication: URINARY INCONTINENCE
     Dosage: UNK, DAILY (1/D)
     Dates: start: 20090101
  9. CALCIUM [Concomitant]
     Indication: MEDICAL DIET
     Dosage: 1200 MG, DAILY (1/D)
     Dates: start: 19970101
  10. POTASSIUM [Concomitant]
     Indication: MEDICAL DIET
     Dosage: UNK, DAILY (1/D)
     Dates: start: 20090101
  11. ASPIRIN [Concomitant]
     Indication: CARDIOVASCULAR EVENT PROPHYLAXIS
     Dosage: 81 MG, DAILY (1/D)
     Dates: start: 19990101
  12. DONEPEZIL HYDROCHLORIDE [Concomitant]
     Indication: AMNESIA
     Dosage: 10 MG, DAILY (1/D)
     Dates: start: 20090101
  13. PANTOPRAZOLE [Concomitant]
     Indication: PROPHYLAXIS AGAINST GASTROINTESTINAL ULCER
     Dosage: 20 MG, DAILY (1/D)
     Dates: start: 20090101
  14. FAMCICLOVIR [Concomitant]
     Indication: HERPES SIMPLEX
     Dosage: 500 MG, 3/D
     Dates: start: 20030101
  15. FLUOXETINE HCL [Concomitant]
     Indication: DEPRESSION
     Dosage: 20 MG, DAILY (1/D)
     Dates: start: 20091001
  16. NAPROXEN [Concomitant]
     Indication: PAIN
     Dosage: 275 MG, 2/D
     Dates: start: 20091001
  17. PREDNISONE [Concomitant]
     Indication: MYALGIA
     Dosage: 10 MG, UNK
     Dates: start: 20020101

REACTIONS (2)
  - MULTIPLE SCLEROSIS [None]
  - MUSCLE INJURY [None]
